FAERS Safety Report 13728865 (Version 1)
Quarter: 2017Q3

REPORT INFORMATION
  Report Type: Spontaneous
  Country: US (occurrence: US)
  Receive Date: 20170707
  Receipt Date: 20170707
  Transmission Date: 20171127
  Serious: No
  Sender: FDA-Public Use
  Company Number: US-AMGEN-USASP2017099347

PATIENT
  Age: 49 Year
  Sex: Male

DRUGS (1)
  1. ENBREL [Suspect]
     Active Substance: ETANERCEPT
     Indication: PRODUCT USED FOR UNKNOWN INDICATION
     Dosage: UNK
     Route: 065

REACTIONS (13)
  - Joint crepitation [Unknown]
  - Drug effect decreased [Unknown]
  - Arthralgia [Unknown]
  - Arthropathy [Unknown]
  - Mobility decreased [Unknown]
  - Blood glucose increased [Unknown]
  - Iron binding capacity unsaturated decreased [Unknown]
  - Chest discomfort [Unknown]
  - Synovitis [Unknown]
  - Blood iron increased [Unknown]
  - Dyspnoea [Unknown]
  - Wheezing [Unknown]
  - Vitamin D decreased [Unknown]
